FAERS Safety Report 25311475 (Version 2)
Quarter: 2025Q2

REPORT INFORMATION
  Report Type: Spontaneous
  Country: US (occurrence: US)
  Receive Date: 20250514
  Receipt Date: 20250527
  Transmission Date: 20250717
  Serious: Yes (Hospitalization, Other)
  Sender: AUROBINDO
  Company Number: US-AUROBINDO-AUR-APL-2025-023871

PATIENT
  Age: 44 Year
  Sex: Female

DRUGS (3)
  1. MEROPENEM [Suspect]
     Active Substance: MEROPENEM
     Indication: Pneumonia bacterial
     Route: 065
  2. ORITAVANCIN [Suspect]
     Active Substance: ORITAVANCIN
     Indication: Pneumonia bacterial
     Route: 065
  3. CEFTAROLINE FOSAMIL [Suspect]
     Active Substance: CEFTAROLINE FOSAMIL
     Indication: Pneumonia bacterial
     Route: 065

REACTIONS (1)
  - Drug ineffective [Unknown]
